FAERS Safety Report 7665101-3 (Version None)
Quarter: 2011Q3

REPORT INFORMATION
  Report Type: 
  Country: None (occurrence: None)
  Receive Date: 20110806
  Receipt Date: 20110502
  Transmission Date: 20111222
  Serious: No
  Sender: FDA-Public Use
  Company Number: US-ABBOTT-11P-163-0722862-00

PATIENT
  Sex: Male
  Weight: 86.26 kg

DRUGS (3)
  1. NIASPAN [Suspect]
     Indication: BLOOD TRIGLYCERIDES INCREASED
     Dates: start: 20110405, end: 20110420
  2. NIASPAN [Suspect]
     Dates: start: 20110328, end: 20110404
  3. NIASPAN [Suspect]
     Dates: start: 20110321, end: 20110327

REACTIONS (2)
  - SKIN BURNING SENSATION [None]
  - ERYTHEMA [None]
